FAERS Safety Report 25785759 (Version 2)
Quarter: 2025Q4

REPORT INFORMATION
  Report Type: Spontaneous
  Country: AU (occurrence: AU)
  Receive Date: 20250910
  Receipt Date: 20251113
  Transmission Date: 20260118
  Serious: Yes (Other)
  Sender: ALEXION PHARMACEUTICALS
  Company Number: AU-AstraZeneca-CH-00946425A

PATIENT
  Sex: Female

DRUGS (2)
  1. FASENRA [Suspect]
     Active Substance: BENRALIZUMAB
     Indication: Eosinophilic granulomatosis with polyangiitis
     Dosage: UNK, Q4W
  2. FASENRA [Suspect]
     Active Substance: BENRALIZUMAB

REACTIONS (1)
  - Eosinophilic granulomatosis with polyangiitis [Unknown]
